FAERS Safety Report 8395464-5 (Version None)
Quarter: 2012Q2

REPORT INFORMATION
  Report Type: 
  Country: None (occurrence: None)
  Receive Date: 20120525
  Receipt Date: 20120525
  Transmission Date: 20120825
  Serious: No
  Sender: FDA-Public Use
  Company Number: None

PATIENT
  Age: 62 Year
  Sex: Female

DRUGS (2)
  1. NEURONTIN [Suspect]
  2. TEGRETOL [Suspect]
     Dosage: 100MG TID PO
     Route: 048

REACTIONS (4)
  - RESTLESSNESS [None]
  - ORAL DISCOMFORT [None]
  - CONTUSION [None]
  - EMOTIONAL DISORDER [None]
